FAERS Safety Report 12285746 (Version 1)
Quarter: 2016Q2

REPORT INFORMATION
  Report Type: Spontaneous
  Country: US (occurrence: None)
  Receive Date: 20160419
  Receipt Date: 20160419
  Transmission Date: 20160815
  Serious: No
  Sender: FDA-Public Use
  Company Number: None

PATIENT

DRUGS (2)
  1. SODIUM FLUORIDE 0.25MG/ML [Suspect]
     Active Substance: SODIUM FLUORIDE
  2. SODIUM FLUORIDE 5MG/ML [Suspect]
     Active Substance: SODIUM FLUORIDE

REACTIONS (1)
  - Product label issue [None]
